FAERS Safety Report 20905023 (Version 11)
Quarter: 2025Q3

REPORT INFORMATION
  Report Type: Report from Study
  Country: CA (occurrence: CA)
  Receive Date: 20220602
  Receipt Date: 20250821
  Transmission Date: 20251021
  Serious: Yes (Hospitalization, Other)
  Sender: TAKEDA
  Company Number: CA-TAKEDA-2021TUS083382

PATIENT
  Age: 64 Year
  Sex: Male

DRUGS (29)
  1. IXAZOMIB [Suspect]
     Active Substance: IXAZOMIB
     Indication: Plasma cell myeloma
  2. IXAZOMIB [Suspect]
     Active Substance: IXAZOMIB
     Indication: Primary amyloidosis
     Dates: start: 20211126, end: 20240712
  3. AMLODIPINE [Concomitant]
     Active Substance: AMLODIPINE BESYLATE
     Indication: Blood pressure systolic increased
     Dosage: 5 MILLIGRAM, QD
  4. AMLODIPINE [Concomitant]
     Active Substance: AMLODIPINE BESYLATE
     Dosage: 5 MILLIGRAM, QOD
  5. HYALURONATE SODIUM [Concomitant]
     Active Substance: HYALURONATE SODIUM
  6. SYSTANE (HYPROMELLOSE 2910 (4000 MPA.S)) [Concomitant]
     Active Substance: HYPROMELLOSE 2910 (4000 MPA.S)
  7. RESTASIS [Concomitant]
     Active Substance: CYCLOSPORINE
  8. VITAMINS [Concomitant]
     Active Substance: VITAMINS
     Dosage: UNK UNK, QD
  9. VITAMIN B12 [Concomitant]
     Active Substance: CYANOCOBALAMIN
     Dosage: UNK UNK, QD
  10. VITAMIN D3 [Concomitant]
     Active Substance: CHOLECALCIFEROL
     Dosage: UNK, QD
  11. OMEGA 3 [Concomitant]
     Active Substance: CAPSAICIN
     Dosage: UNK UNK, QD
  12. ACYCLOVIR [Concomitant]
     Active Substance: ACYCLOVIR
     Dosage: 400 MILLIGRAM, BID
  13. ACYCLOVIR [Concomitant]
     Active Substance: ACYCLOVIR
     Dosage: 400 MILLIGRAM, QD
  14. SENOKOT [Concomitant]
     Active Substance: SENNOSIDES
  15. VITAMIN D NOS [Concomitant]
     Active Substance: CHOLECALCIFEROL\ERGOCALCIFEROL
     Dosage: UNK UNK, QD
  16. ALBUTEROL [Concomitant]
     Active Substance: ALBUTEROL
  17. AMOXICILLIN\CLAVULANIC ACID [Concomitant]
     Active Substance: AMOXICILLIN\CLAVULANIC ACID
  18. PREDNISOLONE [Concomitant]
     Active Substance: PREDNISOLONE
  19. KEPPRA [Concomitant]
     Active Substance: LEVETIRACETAM
  20. LOPERAMIDE [Concomitant]
     Active Substance: LOPERAMIDE
  21. PANTOPRAZOLE [Concomitant]
     Active Substance: PANTOPRAZOLE
  22. SOOTHE NIGHT TIME [Concomitant]
     Active Substance: MINERAL OIL\PETROLATUM
  23. CALCIUM CARBONATE [Concomitant]
     Active Substance: CALCIUM CARBONATE
  24. DOCUSATE [Concomitant]
     Active Substance: DOCUSATE
  25. CALCITRIOL [Concomitant]
     Active Substance: CALCITRIOL
  26. LEVETIRACETAM [Concomitant]
     Active Substance: LEVETIRACETAM
  27. Replavite [Concomitant]
  28. ZOPICLONE [Concomitant]
     Active Substance: ZOPICLONE
  29. MIDODRINE [Concomitant]
     Active Substance: MIDODRINE

REACTIONS (21)
  - Cardiac arrest [Recovering/Resolving]
  - Atrioventricular block complete [Recovered/Resolved]
  - SARS-CoV-2 test positive [Recovered/Resolved]
  - Seizure [Recovered/Resolved]
  - Renal failure [Unknown]
  - Renal amyloidosis [Unknown]
  - Fall [Recovering/Resolving]
  - Multiple fractures [Recovering/Resolving]
  - Vascular device infection [Recovering/Resolving]
  - Upper respiratory tract infection [Recovered/Resolved]
  - Off label use [Unknown]
  - Productive cough [Recovering/Resolving]
  - Paraesthesia [Not Recovered/Not Resolved]
  - Hypoaesthesia [Not Recovered/Not Resolved]
  - Arthritis [Unknown]
  - Wheezing [Unknown]
  - Toothache [Unknown]
  - Tooth infection [Unknown]
  - Drug ineffective [Unknown]
  - Dizziness [Recovered/Resolved]
  - Constipation [Unknown]

NARRATIVE: CASE EVENT DATE: 20211126
